FAERS Safety Report 6382060-4 (Version None)
Quarter: 2009Q3

REPORT INFORMATION
  Report Type: 
  Country: None (occurrence: None)
  Receive Date: 20090930
  Receipt Date: 20090918
  Transmission Date: 20100115
  Serious: Yes (Hospitalization, Other)
  Sender: FDA-Public Use
  Company Number: PHHY2009JP40236

PATIENT
  Sex: Female
  Weight: 42 kg

DRUGS (15)
  1. COMTAN CMT+TAB [Suspect]
     Indication: PARKINSON'S DISEASE
     Dosage: 400 MG DAILY
     Route: 048
     Dates: start: 20080711, end: 20090320
  2. COMTAN CMT+TAB [Suspect]
     Dosage: 200 MG DAILY
     Route: 048
     Dates: start: 20090321, end: 20090402
  3. COMTAN CMT+TAB [Suspect]
     Dosage: 300 MG DAILY
     Route: 048
     Dates: start: 20090403, end: 20090424
  4. LEVODOPA BENSERAZIDE HYDROCHLO [Concomitant]
     Indication: PARKINSON'S DISEASE
     Dosage: 450 MG
     Route: 048
     Dates: start: 20050701
  5. LEVODOPA BENSERAZIDE HYDROCHLO [Concomitant]
     Dosage: 500 MG
     Route: 048
  6. PERMAX [Concomitant]
     Indication: PARKINSON'S DISEASE
     Dosage: 750 UG
     Route: 048
     Dates: start: 20080611
  7. EXCEGRAN [Concomitant]
     Indication: PARKINSON'S DISEASE
     Dosage: 50 MG
     Route: 048
     Dates: start: 20080611
  8. SYMMETREL [Concomitant]
     Indication: PARKINSON'S DISEASE
     Dosage: 100 MG
     Route: 048
     Dates: start: 20080711
  9. REQUIP [Concomitant]
     Dosage: 0.25 MG
     Route: 048
     Dates: start: 20080611
  10. RIVOTRIL [Concomitant]
     Dosage: 0.5 MG
     Route: 048
     Dates: start: 20080711
  11. MAGLAX [Concomitant]
     Dosage: 750 MG
     Route: 048
     Dates: start: 20080711
  12. EVISTA [Concomitant]
     Dosage: 60 MG
     Route: 048
     Dates: start: 20080711
  13. POLLAKISU [Concomitant]
     Dosage: 2 MG
     Route: 048
     Dates: start: 20080711
  14. SENNA LIQUID EXTRACT [Concomitant]
     Dosage: 160 MG
     Route: 048
     Dates: start: 20080711
  15. TRYPTANOL [Concomitant]
     Dosage: 5 MG
     Route: 048
     Dates: start: 20080711

REACTIONS (6)
  - ACTIVITIES OF DAILY LIVING IMPAIRED [None]
  - BLOOD CREATININE INCREASED [None]
  - BLOOD UREA INCREASED [None]
  - CONTUSION [None]
  - DECREASED APPETITE [None]
  - FALL [None]
